FAERS Safety Report 17655359 (Version 1)
Quarter: 2020Q2

REPORT INFORMATION
  Report Type: Spontaneous
  Country: US (occurrence: US)
  Receive Date: 20200410
  Receipt Date: 20200410
  Transmission Date: 20200713
  Serious: No
  Sender: FDA-Public Use
  Company Number: US-AMGEN INC.-USASP2020058400

PATIENT
  Age: 42 Year
  Sex: Female

DRUGS (2)
  1. ELETRIPTAN [ELETRIPTAN HYDROBROMIDE] [Concomitant]
     Dosage: UNK
  2. AIMOVIG [Suspect]
     Active Substance: ERENUMAB-AOOE
     Indication: MIGRAINE
     Dosage: 70 MILLIGRAM, QMO
     Route: 065
     Dates: start: 20200216

REACTIONS (3)
  - Product storage error [Unknown]
  - Therapeutic response shortened [Unknown]
  - Injection site pain [Not Recovered/Not Resolved]

NARRATIVE: CASE EVENT DATE: 202002
